FAERS Safety Report 7784284-8 (Version None)
Quarter: 2011Q3

REPORT INFORMATION
  Report Type: 
  Country: None (occurrence: None)
  Receive Date: 20110928
  Receipt Date: 20110915
  Transmission Date: 20111222
  Serious: Yes (Other)
  Sender: FDA-Public Use
  Company Number: PHHY2011BR82621

PATIENT
  Sex: Female
  Weight: 88 kg

DRUGS (17)
  1. DIOVAN HCT [Suspect]
     Indication: HYPERTENSION
     Dosage: 1 DF, (VALS 320 MG, HYDR 12.5 MG) 1 DF, DAILY
     Route: 048
     Dates: start: 20110715
  2. CELEBRIN [Concomitant]
     Indication: DEPRESSION
     Dosage: 1 DF, DAILY
     Route: 048
  3. SUSTRATE [Concomitant]
     Dosage: 1 DF, TID
     Route: 048
  4. ACETAMINOPHEN [Concomitant]
     Indication: PAIN
     Dosage: 1 DF, Q6H
     Route: 048
  5. SIMVASTATIN [Concomitant]
     Dosage: 1 DF, DAILY
     Route: 048
  6. BETAHISTINE HYDROCHLORIDE [Concomitant]
     Dosage: 1 DF, DAILY
     Route: 048
  7. METFORMIN HCL [Concomitant]
     Indication: DIABETES MELLITUS
     Dosage: 850 MG, TID
     Route: 048
  8. OMEPRAZOLE [Concomitant]
     Indication: NAUSEA
     Dosage: 1 DF, DAILY
     Route: 048
  9. GLYBURIDE [Concomitant]
     Dosage: 2 DF, BID
     Route: 048
  10. ASPIRIN [Concomitant]
     Indication: COAGULOPATHY
     Dosage: 2 DF, QD
     Route: 048
  11. OSCAL [Concomitant]
     Indication: OSTEOPOROSIS
     Dosage: 1 DF, DAILY
     Route: 048
  12. GLYBURIDE [Concomitant]
     Indication: HYPERTENSION
     Dosage: 1 DF, UNK
  13. AMLODIPINE [Concomitant]
     Indication: HYPERTENSION
     Dosage: 2 DF, QD
     Route: 048
  14. EXFORGE HCT [Suspect]
     Indication: HYPERTENSION
     Dosage: 1 DF, (160/12.5/10 MG) DAILY
     Route: 048
  15. FUROSEMIDE [Concomitant]
     Indication: HYPERTENSION
     Dosage: 1 DF, DAILY
     Route: 048
  16. GLUCOSAMINE SULFATE W/CHONDROITIN [Concomitant]
     Indication: ARTHRALGIA
     Dosage: 1 DF, DAILY
     Route: 048
  17. NOCTIDEN [Concomitant]
     Indication: SLEEP DISORDER
     Dosage: 0.5 DF, DAILY
     Route: 048

REACTIONS (2)
  - BLOOD PRESSURE INCREASED [None]
  - FOOT FRACTURE [None]
